FAERS Safety Report 17087696 (Version 1)
Quarter: 2019Q4

REPORT INFORMATION
  Report Type: Spontaneous
  Country: US (occurrence: US)
  Receive Date: 20191031
  Receipt Date: 20191031
  Transmission Date: 20200122
  Serious: No
  Sender: FDA-Public Use
  Company Number: None

PATIENT
  Age: 19 Year
  Sex: Female

DRUGS (1)
  1. ACTEMRA ACTPEN [Suspect]
     Active Substance: TOCILIZUMAB
     Dosage: ?          OTHER DOSE:162;OTHER FREQUENCY:OTHER;?
     Route: 058

REACTIONS (3)
  - Pain [None]
  - Rheumatoid arthritis [None]
  - Joint swelling [None]

NARRATIVE: CASE EVENT DATE: 20191031
